FAERS Safety Report 16382648 (Version 1)
Quarter: 2019Q2

REPORT INFORMATION
  Report Type: Spontaneous
  Country: US (occurrence: US)
  Receive Date: 20190430
  Receipt Date: 20190430
  Transmission Date: 20190711
  Serious: Yes (Hospitalization)
  Sender: FDA-Public Use
  Company Number: None

PATIENT
  Age: 54 Year
  Sex: Female

DRUGS (11)
  1. NYSTATIN SUS 100000 [Concomitant]
  2. IBRANCE [Suspect]
     Active Substance: PALBOCICLIB
     Indication: BREAST CANCER FEMALE
     Route: 048
     Dates: start: 20190417
  3. POT CL MICRO 20MEQ [Concomitant]
  4. DEXAMETHASONE 4MG [Concomitant]
     Active Substance: DEXAMETHASONE
  5. ONDANSETRON. [Concomitant]
     Active Substance: ONDANSETRON
  6. CLOTRIMAZOLE LOZ 10MG [Concomitant]
  7. TRAMADOL HYDROCHLORIDE. [Concomitant]
     Active Substance: TRAMADOL HYDROCHLORIDE
  8. SPIRONOLACTONE 25MG [Concomitant]
     Active Substance: SPIRONOLACTONE
  9. FUROSEMIDE 40MG [Concomitant]
     Active Substance: FUROSEMIDE
  10. XGEVA [Suspect]
     Active Substance: DENOSUMAB
     Indication: BREAST CANCER FEMALE
     Dosage: ?          OTHER FREQUENCY:EVERY 28 DAYS;?
     Route: 058
     Dates: start: 20190417
  11. CEFDINIR 300MG [Concomitant]
     Active Substance: CEFDINIR

REACTIONS (3)
  - Rectal haemorrhage [None]
  - Syncope [None]
  - Therapy cessation [None]

NARRATIVE: CASE EVENT DATE: 20190426
